FAERS Safety Report 17659613 (Version 1)
Quarter: 2020Q2

REPORT INFORMATION
  Report Type: Spontaneous
  Country: CZ (occurrence: CZ)
  Receive Date: 20200413
  Receipt Date: 20200413
  Transmission Date: 20200713
  Serious: Yes (Other)
  Sender: FDA-Public Use
  Company Number: CZ-TEVA-2020-CZ-1222693

PATIENT
  Age: 58 Year
  Sex: Female

DRUGS (1)
  1. TERBINAFIN ACTAVIS [Suspect]
     Active Substance: TERBINAFINE HYDROCHLORIDE
     Indication: DERMATOPHYTOSIS
     Dosage: 1X1; FIRST MEDICINE PACKING FROM 27.01.2020 (FINISHED ALL 28 PILLS), SECOND MEDICINE PACKING FROM 17
     Route: 048

REACTIONS (2)
  - Decreased appetite [Not Recovered/Not Resolved]
  - Dysgeusia [Not Recovered/Not Resolved]

NARRATIVE: CASE EVENT DATE: 202003
